FAERS Safety Report 9788471 (Version 2)
Quarter: 2014Q1

REPORT INFORMATION
  Report Type: Report from Study
  Country: DE (occurrence: DE)
  Receive Date: 20131230
  Receipt Date: 20140123
  Transmission Date: 20141002
  Serious: Yes (Congenital Anomaly)
  Sender: FDA-Public Use
  Company Number: DE-B.I. PHARMACEUTICALS,INC./RIDGEFIELD-2013-BI-43272DE

PATIENT
  Sex: Female
  Weight: .18 kg

DRUGS (3)
  1. VIRAMUNE [Suspect]
     Indication: EXPOSURE DURING PREGNANCY
     Route: 064
  2. TRUVADA [Suspect]
     Indication: EXPOSURE DURING PREGNANCY
     Route: 064
  3. FOLS?URE [Concomitant]
     Indication: EXPOSURE DURING PREGNANCY
     Route: 064

REACTIONS (7)
  - Nervous system disorder [Unknown]
  - Nervous system disorder [Unknown]
  - Hygroma colli [Not Recovered/Not Resolved]
  - Microstomia [Unknown]
  - Microtia [Unknown]
  - Retrognathia [Not Recovered/Not Resolved]
  - Low birth weight baby [Unknown]
